FAERS Safety Report 20814753 (Version 1)
Quarter: 2022Q2

REPORT INFORMATION
  Report Type: Spontaneous
  Country: US (occurrence: US)
  Receive Date: 20220511
  Receipt Date: 20220511
  Transmission Date: 20220721
  Serious: No
  Sender: FDA-Public Use
  Company Number: US-AMGEN-USASP2022080522

PATIENT
  Age: 77 Year
  Sex: Female

DRUGS (4)
  1. EVENITY [Suspect]
     Active Substance: ROMOSOZUMAB-AQQG
     Indication: Osteoporosis postmenopausal
     Dosage: UNK
     Route: 065
     Dates: start: 20211001
  2. HYDROCODONE [Concomitant]
     Active Substance: HYDROCODONE
     Indication: Spinal compression fracture
     Dosage: 7.5 MILLIGRAM, QID
     Route: 065
  3. VITAMIN D [Concomitant]
     Active Substance: VITAMIN D NOS
     Dosage: UNK UNK, QWK (50,000 UNITS ONCE A WEEK AND 2,000 UNITS ONCE A WEEK)
  4. CALCIUM [Concomitant]
     Active Substance: CALCIUM
     Dosage: 1500 MILLIGRAM, QD

REACTIONS (2)
  - Dry mouth [Unknown]
  - Weight decreased [Unknown]
